FAERS Safety Report 4942686-9 (Version None)
Quarter: 2006Q1

REPORT INFORMATION
  Report Type: 
  Country: None (occurrence: None)
  Receive Date: 20060309
  Receipt Date: 20060227
  Transmission Date: 20060701
  Serious: Yes (Other)
  Sender: FDA-Public Use
  Company Number: 2006012392

PATIENT
  Age: 52 Year
  Sex: Male
  Weight: 70 kg

DRUGS (1)
  1. DILANTIN KAPSEAL [Suspect]
     Indication: CRANIOTOMY
     Dosage: 300 MG (100 MG, 3 IN 1 D), ORAL
     Route: 048

REACTIONS (3)
  - HYPOAESTHESIA [None]
  - VERTIGO [None]
  - VISUAL DISTURBANCE [None]
